FAERS Safety Report 9276980 (Version 1)
Quarter: 2013Q2

REPORT INFORMATION
  Report Type: Spontaneous
  Country: US (occurrence: US)
  Receive Date: 20130507
  Receipt Date: 20130507
  Transmission Date: 20140414
  Serious: No
  Sender: FDA-Public Use
  Company Number: US-ASTRAZENECA-2013SE28473

PATIENT
  Age: 65 Year
  Sex: Male
  Weight: 70.8 kg

DRUGS (11)
  1. CRESTOR [Suspect]
     Indication: BLOOD CHOLESTEROL ABNORMAL
     Route: 048
     Dates: start: 201302
  2. CRESTOR [Suspect]
     Indication: BLOOD CHOLESTEROL ABNORMAL
     Route: 048
     Dates: start: 20130420
  3. LITHIUM CARBONATE [Concomitant]
     Indication: DEPRESSION
  4. LAMICTAL [Concomitant]
     Indication: DEPRESSION
  5. LOW DOSE ASPIRIN [Concomitant]
     Indication: COAGULOPATHY
     Dosage: DAILY
  6. LOPRESSOR [Concomitant]
     Indication: CARDIAC OPERATION
  7. VITAMIN D3 LIQUID [Concomitant]
     Indication: VITAMIN D ABNORMAL
  8. RED RICE YEAST [Concomitant]
     Indication: SUPPLEMENTATION THERAPY
  9. KRILL OIL [Concomitant]
     Indication: SUPPLEMENTATION THERAPY
  10. LIPITOR [Concomitant]
  11. WIDE ARRAY OF STATINS OVER YEARS/LIPITOR AND SEVERAL OTHERS [Concomitant]

REACTIONS (5)
  - Weight decreased [Unknown]
  - Anxiety [Unknown]
  - Lyme disease [Unknown]
  - Amnesia [Unknown]
  - Depression [Unknown]
